FAERS Safety Report 18686611 (Version 1)
Quarter: 2020Q4

REPORT INFORMATION
  Report Type: Spontaneous
  Country: DE (occurrence: DE)
  Receive Date: 20201231
  Receipt Date: 20201231
  Transmission Date: 20210114
  Serious: Yes (Hospitalization, Congenital Anomaly, Other)
  Sender: FDA-Public Use
  Company Number: DE-GLAXOSMITHKLINE-DE2020255423

PATIENT
  Age: 1 Day
  Sex: Male
  Weight: 2.4 kg

DRUGS (4)
  1. TRIAMGALEN [Concomitant]
     Active Substance: TRIAMCINOLONE ACETONIDE
     Indication: NEURODERMATITIS
     Dosage: UNK (IF REQUIRED)
     Route: 064
     Dates: start: 20190923, end: 20191218
  2. VALPROIC ACID. [Suspect]
     Active Substance: VALPROIC ACID
     Indication: EPILEPSY
     Dosage: 1500 MG, QD (1000-0-500 MG DAILY)
     Route: 064
  3. KEPPRA [Concomitant]
     Active Substance: LEVETIRACETAM
     Indication: EPILEPSY
     Dosage: 2000 MG, QD (2 SEPARATED DOSES)
     Route: 064
  4. LAMOTRIGINE. [Suspect]
     Active Substance: LAMOTRIGINE
     Indication: EPILEPSY
     Dosage: 600 MG, QD (INITAL 100-0-100MG DAILY, INCREASED TO 300-0-300MG DAILY)
     Route: 064
     Dates: start: 20190923, end: 20200609

REACTIONS (4)
  - Coarctation of the aorta [Unknown]
  - Microcephaly [Not Recovered/Not Resolved]
  - Patent ductus arteriosus [Recovered/Resolved with Sequelae]
  - Foetal exposure during pregnancy [Unknown]

NARRATIVE: CASE EVENT DATE: 20200609
